FAERS Safety Report 16162981 (Version 4)
Quarter: 2019Q2

REPORT INFORMATION
  Report Type: Spontaneous
  Country: CN (occurrence: CN)
  Receive Date: 20190405
  Receipt Date: 20190419
  Transmission Date: 20190711
  Serious: Yes (Death, Hospitalization, Other)
  Sender: FDA-Public Use
  Company Number: CN-SA-2019SA093779

PATIENT
  Age: 40 Year
  Sex: Female
  Weight: 42 kg

DRUGS (1)
  1. CEREZYME [Suspect]
     Active Substance: IMIGLUCERASE
     Indication: GAUCHER^S DISEASE
     Dosage: 400 U; UNK
     Route: 042
     Dates: start: 200909, end: 20190214

REACTIONS (7)
  - Pyrexia [Fatal]
  - Cough [Fatal]
  - Respiratory failure [Fatal]
  - Sputum increased [Unknown]
  - Lung infection [Fatal]
  - Fall [Unknown]
  - Head injury [Unknown]

NARRATIVE: CASE EVENT DATE: 20190125
